FAERS Safety Report 19013130 (Version 1)
Quarter: 2021Q1

REPORT INFORMATION
  Report Type: Spontaneous
  Country: US (occurrence: US)
  Receive Date: 20210315
  Receipt Date: 20210315
  Transmission Date: 20210420
  Serious: Yes (Other)
  Sender: FDA-Public Use
  Company Number: US-PFIZER INC-2007090069

PATIENT
  Age: 78 Year
  Sex: Female

DRUGS (2)
  1. CREON [Concomitant]
     Active Substance: PANCRELIPASE AMYLASE\PANCRELIPASE LIPASE\PANCRELIPASE PROTEASE
     Indication: PANCREATITIS
     Dosage: UNK (TAKES TWO PER MEAL THREE TIMES PER DAY AND ONE WITH A SNACK EVERY TIME SHE EATS)
     Dates: start: 2013
  2. DILANTIN [Suspect]
     Active Substance: PHENYTOIN
     Indication: SEIZURE
     Dosage: UNK UNK, 2X/DAY (200 MG IN MORNING AND 100 MG IN EVENING BY MOUTH)
     Route: 048

REACTIONS (4)
  - Gingival disorder [Unknown]
  - Pancreatitis [Unknown]
  - Neuropathy peripheral [Unknown]
  - Neuralgia [Unknown]

NARRATIVE: CASE EVENT DATE: 2013
